FAERS Safety Report 21424006 (Version 1)
Quarter: 2022Q4

REPORT INFORMATION
  Report Type: Spontaneous
  Country: GR (occurrence: None)
  Receive Date: 20221007
  Receipt Date: 20221007
  Transmission Date: 20230113
  Serious: Yes (Life-Threatening)
  Sender: FDA-Public Use
  Company Number: 2022A338437

PATIENT
  Age: 44 Year
  Sex: Male
  Weight: 69 kg

DRUGS (4)
  1. ROSUVASTATIN [Suspect]
     Active Substance: ROSUVASTATIN
     Indication: Type IIa hyperlipidaemia
     Dosage: 5.0MG UNKNOWN
     Route: 065
  2. PITAVASTATIN [Suspect]
     Active Substance: PITAVASTATIN
     Indication: Type IIa hyperlipidaemia
     Dosage: 1.0MG UNKNOWN
     Route: 065
  3. URSODIOL [Concomitant]
     Active Substance: URSODIOL
     Indication: Non-alcoholic steatohepatitis
     Dosage: 250.0MG UNKNOWN
     Route: 065
  4. EZETIMIBE [Concomitant]
     Active Substance: EZETIMIBE
     Dosage: 10.0MG UNKNOWN
     Route: 065

REACTIONS (2)
  - Non-alcoholic steatohepatitis [Unknown]
  - Hepatic enzyme abnormal [Unknown]

NARRATIVE: CASE EVENT DATE: 20190901
